FAERS Safety Report 8188363-5 (Version None)
Quarter: 2012Q1

REPORT INFORMATION
  Report Type: 
  Country: None (occurrence: None)
  Receive Date: 20120221
  Receipt Date: 20110114
  Transmission Date: 20120608
  Serious: Yes (Other)
  Sender: FDA-Public Use
  Company Number: PHHY2011US03806

PATIENT
  Sex: Male

DRUGS (7)
  1. TOBI [Suspect]
     Dosage: 300 MG, INHALATION
     Route: 055
  2. PROAIR (FLUTICASONE PROPIONATE) [Concomitant]
  3. CRION 12 [Concomitant]
  4. ANTIBIOTICS (NO INGREDIENTS/SUBSTANCES) [Concomitant]
  5. VITAMINS (NO INGREDIENTS/SUBSTANCES) [Concomitant]
  6. AXID [Concomitant]
  7. PULMOZYME [Concomitant]

REACTIONS (3)
  - FEELING ABNORMAL [None]
  - DEAFNESS [None]
  - URTICARIA [None]
